FAERS Safety Report 7005792-3 (Version None)
Quarter: 2010Q3

REPORT INFORMATION
  Report Type: 
  Country: None (occurrence: None)
  Receive Date: 20100921
  Receipt Date: 20100916
  Transmission Date: 20110219
  Serious: Yes (Hospitalization, Other)
  Sender: FDA-Public Use
  Company Number: FR-BRISTOL-MYERS SQUIBB COMPANY-15293582

PATIENT
  Age: 40 Year
  Sex: Male

DRUGS (2)
  1. ABILIFY [Suspect]
     Dosage: STARTED 15MG ,REST ON JUL OR AUG10(INCREASED UP TO 15MG) INCREASED TO 20MG AND REDUCED TO 15MG
     Route: 048
  2. TEMESTA [Concomitant]

REACTIONS (3)
  - ABNORMAL BEHAVIOUR [None]
  - DELUSION [None]
  - EXTRAPYRAMIDAL DISORDER [None]
